FAERS Safety Report 5964304-3 (Version None)
Quarter: 2008Q4

REPORT INFORMATION
  Report Type: 
  Country: None (occurrence: None)
  Receive Date: 20081124
  Receipt Date: 20081117
  Transmission Date: 20090506
  Serious: Yes (Other)
  Sender: FDA-Public Use
  Company Number: KR-PFIZER INC-2008095259

PATIENT
  Sex: Female

DRUGS (2)
  1. CELEBREX [Suspect]
     Route: 048
  2. ALL OTHER THERAPEUTIC PRODUCTS [Suspect]
     Dates: start: 20080801

REACTIONS (6)
  - DRUG INEFFECTIVE [None]
  - DYSPEPSIA [None]
  - DYSURIA [None]
  - FACE OEDEMA [None]
  - SKIN DISCOLOURATION [None]
  - SURGERY [None]
